FAERS Safety Report 17459840 (Version 2)
Quarter: 2020Q4

REPORT INFORMATION
  Report Type: Report from Study
  Country: US (occurrence: US)
  Receive Date: 20200225
  Receipt Date: 20201019
  Transmission Date: 20210113
  Serious: Yes (Death, Hospitalization)
  Sender: FDA-Public Use
  Company Number: US-EXELIXIS-CABO-20027537

PATIENT
  Age: 78 Year
  Sex: Male

DRUGS (1)
  1. CABOMETYX [Suspect]
     Active Substance: CABOZANTINIB S-MALATE
     Indication: RENAL CANCER
     Dosage: 60 MG, QD
     Route: 048

REACTIONS (9)
  - Blood pressure decreased [Unknown]
  - Death [Fatal]
  - Pericardial effusion [Unknown]
  - Haemoglobin decreased [Recovering/Resolving]
  - Sinusitis [Recovering/Resolving]
  - Weight decreased [Unknown]
  - Cardiac dysfunction [Unknown]
  - Renal impairment [Recovering/Resolving]
  - Blood potassium increased [Recovering/Resolving]

NARRATIVE: CASE EVENT DATE: 202002
